FAERS Safety Report 13080794 (Version 2)
Quarter: 2017Q1

REPORT INFORMATION
  Report Type: Spontaneous
  Country: US (occurrence: US)
  Receive Date: 20170103
  Receipt Date: 20170213
  Transmission Date: 20170428
  Serious: Yes (Other)
  Sender: FDA-Public Use
  Company Number: US-PFIZER INC-2016594941

PATIENT
  Age: 53 Year
  Sex: Male

DRUGS (3)
  1. LYRICA [Suspect]
     Active Substance: PREGABALIN
     Indication: GOUT
  2. LYRICA [Suspect]
     Active Substance: PREGABALIN
     Indication: SPINAL CORD OPERATION
     Dosage: 100 MG, UNK
  3. LYRICA [Suspect]
     Active Substance: PREGABALIN
     Indication: ROTATOR CUFF SYNDROME
     Dosage: 150 MG, 3X/DAY
     Dates: start: 201511

REACTIONS (6)
  - Drug abuse [Unknown]
  - Aggression [Recovered/Resolved]
  - Energy increased [Recovered/Resolved]
  - Urticaria [Unknown]
  - Irritability [Recovered/Resolved]
  - Rash [Unknown]
